FAERS Safety Report 5346151-9 (Version None)
Quarter: 2007Q2

REPORT INFORMATION
  Report Type: 
  Country: None (occurrence: None)
  Receive Date: 20070605
  Receipt Date: 20070530
  Transmission Date: 20071010
  Serious: Yes (Other)
  Sender: FDA-Public Use
  Company Number: DE-JNJFOC-20070600023

PATIENT
  Sex: Female

DRUGS (3)
  1. IMODIUM AD [Suspect]
     Route: 065
  2. IMODIUM AD [Suspect]
     Indication: DIARRHOEA
     Route: 065
  3. CHEMOTHERAPY [Concomitant]
     Indication: COLON CANCER
     Route: 065

REACTIONS (1)
  - TUMOUR MARKER INCREASED [None]
